FAERS Safety Report 15180926 (Version 2)
Quarter: 2019Q2

REPORT INFORMATION
  Report Type: Spontaneous
  Country: DE (occurrence: DE)
  Receive Date: 20180723
  Receipt Date: 20190507
  Transmission Date: 20190711
  Serious: Yes (Disabling, Other)
  Sender: FDA-Public Use
  Company Number: DE-SAKK-2018SA170583AA

PATIENT
  Age: 39 Year
  Sex: Female

DRUGS (1)
  1. LEMTRADA [Suspect]
     Active Substance: ALEMTUZUMAB
     Indication: MULTIPLE SCLEROSIS
     Dosage: 12 MG, QD
     Route: 041
     Dates: start: 20160101, end: 20160101

REACTIONS (14)
  - Multiple sclerosis relapse [Not Recovered/Not Resolved]
  - Gait disturbance [Unknown]
  - Ataxia [Not Recovered/Not Resolved]
  - Multiple sclerosis [Unknown]
  - Coordination abnormal [Unknown]
  - Fatigue [Unknown]
  - Progressive multifocal leukoencephalopathy [Not Recovered/Not Resolved]
  - Fine motor skill dysfunction [Unknown]
  - Oedema peripheral [Unknown]
  - Eye disorder [Unknown]
  - Expanded disability status scale score increased [Not Recovered/Not Resolved]
  - Vibratory sense increased [Unknown]
  - Hypoaesthesia [Unknown]
  - Paraparesis [Unknown]

NARRATIVE: CASE EVENT DATE: 2016
